FAERS Safety Report 5655227-8 (Version None)
Quarter: 2008Q1

REPORT INFORMATION
  Report Type: 
  Country: None (occurrence: None)
  Receive Date: 20080307
  Receipt Date: 20080228
  Transmission Date: 20080703
  Serious: Yes (Other)
  Sender: FDA-Public Use
  Company Number: AU-ASTRAZENECA-2008AP00387

PATIENT
  Age: 854 Month
  Sex: Female

DRUGS (3)
  1. DIPRIVAN [Suspect]
     Indication: COLONOSCOPY
     Route: 058
     Dates: start: 20061101
  2. FENTANYL [Suspect]
     Indication: COLONOSCOPY
     Route: 058
  3. HYPNOVEL [Suspect]
     Indication: COLONOSCOPY
     Route: 058

REACTIONS (2)
  - AUTOIMMUNE DISORDER [None]
  - INCORRECT ROUTE OF DRUG ADMINISTRATION [None]
